FAERS Safety Report 9477285 (Version 3)
Quarter: 2013Q4

REPORT INFORMATION
  Report Type: Report from Study
  Country: DE (occurrence: DE)
  Receive Date: 20130826
  Receipt Date: 20131024
  Transmission Date: 20140711
  Serious: Yes (Death, Life-Threatening, Hospitalization, Disabling)
  Sender: FDA-Public Use
  Company Number: DE-009507513-2011SP035477

PATIENT
  Age: 73 Year
  Sex: Female

DRUGS (27)
  1. TEMOZOLOMIDE [Suspect]
     Indication: GLIOBLASTOMA MULTIFORME
     Dosage: 130 MG, QD
     Route: 048
     Dates: start: 20110502, end: 20110606
  2. BEVACIZUMAB [Suspect]
     Indication: GLIOBLASTOMA MULTIFORME
     Dosage: 645 MG, EACH 2 WEEKS
     Route: 042
     Dates: end: 20111221
  3. BEVACIZUMAB [Suspect]
     Dosage: UNK
     Dates: start: 20120202
  4. IRINOTECAN HYDROCHLORIDE [Suspect]
     Indication: GLIOBLASTOMA MULTIFORME
     Dosage: 209 MG, 2 WEEKLY
     Route: 042
     Dates: end: 20111221
  5. IRINOTECAN HYDROCHLORIDE [Suspect]
     Dosage: UNK
     Dates: start: 20120118
  6. DOMPERIDONE (+) PANTOPRAZOLE SODIUM [Concomitant]
     Indication: PRODUCT USED FOR UNKNOWN INDICATION
     Dates: start: 20110329
  7. BISOPROLOL [Concomitant]
     Indication: PRODUCT USED FOR UNKNOWN INDICATION
     Dosage: 51 MG, (0-0-5)
     Dates: start: 20110405
  8. BISOPROLOL [Concomitant]
     Dosage: 7.5 MG, UNK
     Dates: start: 20110405
  9. BISOPROLOL [Concomitant]
     Dosage: 5 UNK, UNK
  10. VALIUM [Concomitant]
     Indication: PRODUCT USED FOR UNKNOWN INDICATION
     Dosage: 10 MG, QD
  11. SIMVAHEXAL [Concomitant]
     Indication: PRODUCT USED FOR UNKNOWN INDICATION
     Dosage: 40 MG, UNK
     Dates: start: 20110405, end: 201107
  12. JODID [Concomitant]
     Indication: PRODUCT USED FOR UNKNOWN INDICATION
     Dosage: 100 MG, (0-0-1)
     Dates: start: 20110329
  13. JODID [Concomitant]
     Dosage: 100 MG, (0-0-1)
     Dates: start: 20110705
  14. IBUHEXAL [Concomitant]
     Indication: PRODUCT USED FOR UNKNOWN INDICATION
     Dosage: 600 MG, UNK
     Dates: start: 20110329
  15. IBUHEXAL [Concomitant]
     Dosage: 600 MG, TID (3 MONTHS)
     Dates: start: 20110405, end: 201107
  16. KEPPRA [Concomitant]
     Indication: PRODUCT USED FOR UNKNOWN INDICATION
     Dosage: 250 MG, UNK
     Dates: start: 20110329
  17. KEPPRA [Concomitant]
     Dosage: 1500 MG, BID
     Dates: start: 20110405, end: 20120311
  18. FRAXIPARIN [Concomitant]
     Indication: PRODUCT USED FOR UNKNOWN INDICATION
     Dosage: 0.3 MG, QD
     Dates: start: 20110405
  19. INSIDON [Concomitant]
     Indication: PRODUCT USED FOR UNKNOWN INDICATION
     Dosage: 50 MG, UNK
     Dates: start: 20110329
  20. INSIDON [Concomitant]
     Dosage: 50 MG, BID
     Dates: start: 20110405
  21. PANTOZOL [Concomitant]
     Dosage: 40 MG, (0-0-1)
     Dates: start: 20110329
  22. VOTUM [Concomitant]
     Dosage: 10 MG, QD
     Dates: start: 20110405
  23. AMLODIPINE [Concomitant]
     Dosage: UNK
     Dates: start: 20121109
  24. LEVETIRACETAM [Concomitant]
     Dosage: UNK
     Dates: start: 20121109
  25. CHOLECALCIFEROL [Concomitant]
     Dosage: UNK
     Dates: start: 20121109, end: 201211
  26. OPIPRAMOL HYDROCHLORIDE [Concomitant]
     Dosage: UNK
     Dates: start: 201211
  27. LACOSAMIDE [Concomitant]
     Dosage: UNK
     Dates: start: 20121109

REACTIONS (8)
  - Neoplasm progression [Unknown]
  - Ischaemic limb pain [Recovering/Resolving]
  - General physical condition abnormal [Fatal]
  - Ileus [Fatal]
  - Convulsion [Recovered/Resolved]
  - Deep vein thrombosis [Not Recovered/Not Resolved]
  - Impaired healing [Recovered/Resolved]
  - Impaired healing [Recovered/Resolved]
